FAERS Safety Report 20697014 (Version 3)
Quarter: 2022Q2

REPORT INFORMATION
  Report Type: Report from Study
  Country: JP (occurrence: JP)
  Receive Date: 20220411
  Receipt Date: 20220610
  Transmission Date: 20220721
  Serious: Yes (Hospitalization, Other)
  Sender: FDA-Public Use
  Company Number: JP-ONO-2022JP003133

PATIENT
  Age: 78 Year
  Sex: Male
  Weight: 46.4 kg

DRUGS (21)
  1. ABRAXANE [Suspect]
     Active Substance: PACLITAXEL
     Indication: Pancreatic carcinoma
     Dosage: 540 MG, Q4W (3 WEEKS CONTINUOUS ADMINISTRATION, 1 WEEK WITHDRAWAL), THE MOST RECENT DOSE WAS ADMINIS
     Route: 041
     Dates: start: 20210803
  2. ABRAXANE [Suspect]
     Active Substance: PACLITAXEL
     Route: 041
     Dates: start: 20211124
  3. BMS-986310 [Suspect]
     Active Substance: BMS-986310
     Indication: Pancreatic carcinoma
     Route: 048
  4. GEMCITABINE HYDROCHLORIDE [Concomitant]
     Active Substance: GEMCITABINE HYDROCHLORIDE
     Indication: Pancreatic carcinoma
     Dosage: 4200 MG, Q4W (3 WEEKS CONTINUOUS ADMINISTRATION, 1 WEEK WITHDRAWAL), THE MOST RECENT DOSE WAS ADMINI
     Route: 041
     Dates: start: 20210803
  5. LANSOPRAZOLE [Concomitant]
     Active Substance: LANSOPRAZOLE
     Indication: Gastritis prophylaxis
     Dosage: 15 MG, EVERYDAY
     Route: 048
     Dates: start: 20210726
  6. LANSOPRAZOLE [Concomitant]
     Active Substance: LANSOPRAZOLE
  7. LANSOPRAZOLE [Concomitant]
     Active Substance: LANSOPRAZOLE
  8. URSODIOL [Concomitant]
     Active Substance: URSODIOL
     Indication: Pancreatic carcinoma
     Dosage: 200 MG, Q8H
     Route: 048
     Dates: start: 20210705
  9. URSODIOL [Concomitant]
     Active Substance: URSODIOL
  10. URSODIOL [Concomitant]
     Active Substance: URSODIOL
  11. CALONAL [Concomitant]
     Active Substance: ACETAMINOPHEN
     Indication: Cancer pain
     Dosage: 500 MG, Q8H
     Route: 048
     Dates: start: 20210726
  12. CALONAL [Concomitant]
     Active Substance: ACETAMINOPHEN
  13. CALONAL [Concomitant]
     Active Substance: ACETAMINOPHEN
  14. ZOLPIDEM TARTRATE [Concomitant]
     Active Substance: ZOLPIDEM TARTRATE
     Indication: Insomnia
     Dosage: 5 MG, PRN
     Route: 048
     Dates: start: 20210805
  15. ZOLPIDEM TARTRATE [Concomitant]
     Active Substance: ZOLPIDEM TARTRATE
  16. ZOLPIDEM TARTRATE [Concomitant]
     Active Substance: ZOLPIDEM TARTRATE
  17. MAGNESIUM OXIDE [Concomitant]
     Active Substance: MAGNESIUM OXIDE
     Indication: Constipation
     Dosage: 660 MG, Q8H
     Route: 048
     Dates: start: 20211105
  18. MAGNESIUM OXIDE [Concomitant]
     Active Substance: MAGNESIUM OXIDE
  19. MAGNESIUM OXIDE [Concomitant]
     Active Substance: MAGNESIUM OXIDE
  20. CAMOSTAT MESYLATE [Concomitant]
     Active Substance: CAMOSTAT MESYLATE
     Indication: Pancreatic carcinoma
     Dosage: 200 MG, Q8H
     Route: 048
     Dates: start: 20210726
  21. HUONS LEVOFLOXACIN HYDRATE [Concomitant]
     Indication: Infection prophylaxis
     Dosage: 500 MG, EVERYDAY
     Route: 048
     Dates: start: 20220310

REACTIONS (2)
  - COVID-19 [Recovered/Resolved]
  - Jaundice cholestatic [Recovered/Resolved]

NARRATIVE: CASE EVENT DATE: 20220202
